FAERS Safety Report 22625049 (Version 1)
Quarter: 2023Q2

REPORT INFORMATION
  Report Type: Spontaneous
  Country: PT (occurrence: PT)
  Receive Date: 20230621
  Receipt Date: 20230621
  Transmission Date: 20230721
  Serious: Yes (Other)
  Sender: FDA-Public Use
  Company Number: PT-SA-2023SA187320

PATIENT
  Age: 6 Year
  Sex: Male
  Weight: 25.5 kg

DRUGS (2)
  1. ALPROLIX [Suspect]
     Active Substance: EFTRENONACOG ALFA
     Indication: Factor IX deficiency
     Dosage: 1000 U, QW
     Route: 065
     Dates: start: 20211007
  2. ALPROLIX [Suspect]
     Active Substance: EFTRENONACOG ALFA
     Indication: Factor IX deficiency
     Dosage: 1000 U, QW
     Route: 065
     Dates: start: 20211007

REACTIONS (3)
  - Subcutaneous abscess [Unknown]
  - Odynophagia [Unknown]
  - Ear pain [Unknown]

NARRATIVE: CASE EVENT DATE: 20220427
